FAERS Safety Report 9419066 (Version 7)
Quarter: 2014Q4

REPORT INFORMATION
  Report Type: Report from Study
  Country: ES (occurrence: ES)
  Receive Date: 20130725
  Receipt Date: 20141205
  Transmission Date: 20150529
  Serious: Yes (Death, Life-Threatening, Hospitalization, Other)
  Sender: FDA-Public Use
  Company Number: PHHO2013ES004653

PATIENT
  Age: 49 Year
  Sex: Male
  Weight: 66.5 kg

DRUGS (11)
  1. MYFORTIC [Suspect]
     Active Substance: MYCOPHENOLATE SODIUM
     Indication: RENAL TRANSPLANT
     Dosage: 180 MG, BID
     Route: 065
     Dates: start: 20121016, end: 20130424
  2. DACORTIN [Suspect]
     Active Substance: PREDNISONE
     Indication: RENAL TRANSPLANT
     Dosage: 5 MG, UNK
     Route: 065
     Dates: start: 20120124, end: 20130616
  3. BISOPROLOL [Concomitant]
     Active Substance: BISOPROLOL
     Indication: HYPERTENSION
     Dosage: 5 MG, UNK
     Route: 065
     Dates: start: 20130124, end: 20130401
  4. ATORVASTATIN [Concomitant]
     Active Substance: ATORVASTATIN
     Indication: HYPERCHOLESTEROLAEMIA
     Dosage: 20
     Route: 065
     Dates: start: 20121114, end: 20130401
  5. SEPTRIN [Concomitant]
     Active Substance: SULFAMETHOXAZOLE\TRIMETHOPRIM
     Indication: INFECTION PROPHYLAXIS
     Dosage: 500 MG, UNK
     Route: 065
     Dates: start: 20121107, end: 20130401
  6. OMEPRAZOLE. [Concomitant]
     Active Substance: OMEPRAZOLE
     Indication: PROPHYLAXIS
     Dosage: 20 MG, UNK
     Route: 065
     Dates: start: 20121016, end: 20130401
  7. DOXAZOSIN [Concomitant]
     Active Substance: DOXAZOSIN\DOXAZOSIN MESYLATE
     Indication: HYPERTENSION
     Dosage: 8 BID
     Route: 065
     Dates: start: 20130114, end: 20130401
  8. VALCYTE [Concomitant]
     Active Substance: VALGANCICLOVIR HYDROCHLORIDE
     Indication: CYTOMEGALOVIRUS INFECTION
     Dosage: 450/48H
     Route: 065
     Dates: start: 20121205, end: 20130401
  9. TORASEMIDE [Concomitant]
     Active Substance: TORSEMIDE
     Indication: CYTOMEGALOVIRUS INFECTION
     Dosage: 2.5 MG, UNK
     Route: 065
     Dates: start: 20120114, end: 20130401
  10. NEORAL [Suspect]
     Active Substance: CYCLOSPORINE
     Indication: RENAL TRANSPLANT
     Dosage: 150 MG, BID
     Route: 065
     Dates: start: 20121016, end: 20130424
  11. LERCANIDIPINE [Concomitant]
     Active Substance: LERCANIDIPINE
     Indication: HYPERTENSION
     Dosage: 10 MG, BID
     Route: 065
     Dates: start: 20121129, end: 20130401

REACTIONS (5)
  - Lung neoplasm [Not Recovered/Not Resolved]
  - Hepatic cancer [Fatal]
  - Metastases to spine [Fatal]
  - Renal transplant failure [Not Recovered/Not Resolved]
  - Renal cancer [Fatal]

NARRATIVE: CASE EVENT DATE: 20130327
